FAERS Safety Report 5917509-1 (Version None)
Quarter: 2008Q4

REPORT INFORMATION
  Report Type: 
  Country: None (occurrence: None)
  Receive Date: 20081014
  Receipt Date: 20081008
  Transmission Date: 20090506
  Serious: Yes (Hospitalization)
  Sender: FDA-Public Use
  Company Number: US-ELI_LILLY_AND_COMPANY-US200810002543

PATIENT
  Sex: Female

DRUGS (4)
  1. HUMALOG [Suspect]
     Dosage: UNK, UNK
     Dates: start: 20030101
  2. HUMALOG [Suspect]
     Dosage: UNK, UNK
     Dates: start: 20030101
  3. HUMALOG [Suspect]
     Dosage: UNK, UNK
     Dates: start: 20030101
  4. HUMALOG [Suspect]
     Dosage: UNK, UNK
     Dates: start: 20030101

REACTIONS (7)
  - CARDIAC DISORDER [None]
  - CARDIAC OPERATION [None]
  - DISORIENTATION [None]
  - DRUG HYPERSENSITIVITY [None]
  - DRUG INEFFECTIVE [None]
  - FEELING ABNORMAL [None]
  - STENT PLACEMENT [None]
